FAERS Safety Report 8303316 (Version 5)
Quarter: 2012Q4

REPORT INFORMATION
  Report Type: 
  Country: US (occurrence: US)
  Receive Date: 20111122
  Receipt Date: 20121016
  Transmission Date: 20130627
  Serious: Yes (Other)
  Sender: FDA-Public Use
  Company Number: PHHY2011US51678

PATIENT
  Age: 55 None
  Sex: Male

DRUGS (4)
  1. GILENYA [Suspect]
     Indication: MULTIPLE SCLEROSIS
     Dosage: 0.5 mg, daily
     Route: 048
     Dates: start: 20101229, end: 201105
  2. GILENYA [Suspect]
     Dosage: 0.5 mg, UNK
     Route: 048
     Dates: end: 20120301
  3. GILENYA [Suspect]
     Dosage: 0.5 mg, daily
     Route: 048
     Dates: start: 20121005
  4. PROVIGIL [Concomitant]

REACTIONS (5)
  - Affect lability [Recovering/Resolving]
  - Hepatic enzyme abnormal [Not Recovered/Not Resolved]
  - Blood bilirubin increased [Recovered/Resolved]
  - Vitamin D decreased [Unknown]
  - Fatigue [Not Recovered/Not Resolved]
